FAERS Safety Report 5137769-7 (Version None)
Quarter: 2006Q4

REPORT INFORMATION
  Report Type: 
  Country: None (occurrence: None)
  Receive Date: 20061030
  Receipt Date: 20060109
  Transmission Date: 20070319
  Serious: No
  Sender: FDA-Public Use
  Company Number: US-GLAXOSMITHKLINE-A0588348A

PATIENT
  Age: 85 Year
  Sex: Female

DRUGS (3)
  1. ADVAIR HFA [Suspect]
     Indication: ASTHMA
     Dosage: 1PUFF TWICE PER DAY
     Route: 055
  2. ADVIL [Concomitant]
  3. COMBIVENT [Concomitant]

REACTIONS (2)
  - DYSPHONIA [None]
  - NASAL CONGESTION [None]
